FAERS Safety Report 24355732 (Version 3)
Quarter: 2024Q4

REPORT INFORMATION
  Report Type: Spontaneous
  Country: US (occurrence: US)
  Receive Date: 20240924
  Receipt Date: 20241021
  Transmission Date: 20250114
  Serious: No
  Sender: Haleon PLC
  Company Number: US-HALEON-2198124

PATIENT
  Age: 29 Year
  Sex: Female

DRUGS (1)
  1. ABREVA [Suspect]
     Active Substance: DOCOSANOL
     Indication: Herpes simplex
     Dosage: EXPDATE:20260131 ONCE/TWICE AS NEEDED, DECREASED USE DUE TO SWELLING
     Dates: start: 20240918

REACTIONS (4)
  - Oral discomfort [Recovering/Resolving]
  - Lip swelling [Recovering/Resolving]
  - Wrong technique in product usage process [Unknown]
  - Inappropriate schedule of product administration [Unknown]

NARRATIVE: CASE EVENT DATE: 20240918
